FAERS Safety Report 17254915 (Version 1)
Quarter: 2020Q1

REPORT INFORMATION
  Report Type: Spontaneous
  Country: US (occurrence: US)
  Receive Date: 20200109
  Receipt Date: 20200109
  Transmission Date: 20200409
  Serious: No
  Sender: FDA-Public Use
  Company Number: US-CHILTERN-US-2019-000842

PATIENT

DRUGS (1)
  1. ROCKLATAN [Suspect]
     Active Substance: LATANOPROST\NETARSUDIL MESYLATE
     Indication: GLAUCOMA
     Dosage: UNK
     Route: 047
     Dates: start: 20190914, end: 20190914

REACTIONS (3)
  - Vision blurred [Recovered/Resolved]
  - Halo vision [Recovered/Resolved]
  - Eye irritation [Recovered/Resolved]

NARRATIVE: CASE EVENT DATE: 20190914
